FAERS Safety Report 9473717 (Version 2)
Quarter: 2013Q3

REPORT INFORMATION
  Report Type: Spontaneous
  Country: US (occurrence: US)
  Receive Date: 20130823
  Receipt Date: 20130823
  Transmission Date: 20140515
  Serious: No
  Sender: FDA-Public Use
  Company Number: US-BRISTOL-MYERS SQUIBB COMPANY-16928418

PATIENT
  Sex: Male

DRUGS (1)
  1. SPRYCEL (CML) TABS [Suspect]
     Dosage: LAST DOSE ON 27AUG2012
     Route: 048

REACTIONS (1)
  - Drug dose omission [Unknown]
